FAERS Safety Report 7921111-X (Version None)
Quarter: 2011Q4

REPORT INFORMATION
  Report Type: 
  Country: None (occurrence: None)
  Receive Date: 20111117
  Receipt Date: 20111107
  Transmission Date: 20120403
  Serious: Yes (Hospitalization)
  Sender: FDA-Public Use
  Company Number: US-ELI_LILLY_AND_COMPANY-US201111001974

PATIENT
  Age: 57 Year
  Sex: Male
  Weight: 90.1 kg

DRUGS (2)
  1. GEMCITABINE HYDROCHLORIDE [Suspect]
     Indication: ADENOCARCINOMA PANCREAS
     Dosage: 1000 MG/M2, DAYS 1, 8, 15
     Route: 042
     Dates: start: 20110509, end: 20110926
  2. OTHER PHARMA COMPANY INV DRUG [Suspect]
     Indication: ADENOCARCINOMA PANCREAS
     Dosage: UNK UNK, QD
     Route: 048
     Dates: start: 20110509, end: 20111002

REACTIONS (5)
  - THROMBOTIC THROMBOCYTOPENIC PURPURA [None]
  - ANAEMIA [None]
  - VOMITING [None]
  - DYSPNOEA [None]
  - NAUSEA [None]
